FAERS Safety Report 17231646 (Version 1)
Quarter: 2020Q1

REPORT INFORMATION
  Report Type: Spontaneous
  Country: US (occurrence: US)
  Receive Date: 20200103
  Receipt Date: 20200103
  Transmission Date: 20200409
  Serious: Yes (Hospitalization)
  Sender: FDA-Public Use
  Company Number: US-ASTRAZENECA-2020SE01186

PATIENT
  Sex: Male

DRUGS (2)
  1. SYNAGIS [Suspect]
     Active Substance: PALIVIZUMAB
     Indication: HYPOPLASTIC LEFT HEART SYNDROME
     Route: 030
     Dates: start: 201912
  2. SYNAGIS [Suspect]
     Active Substance: PALIVIZUMAB
     Indication: DOUBLE INLET LEFT VENTRICLE
     Route: 030
     Dates: start: 201912

REACTIONS (1)
  - Dehydration [Unknown]
